FAERS Safety Report 10310631 (Version 2)
Quarter: 2014Q3

REPORT INFORMATION
  Report Type: Report from Study
  Country: GB (occurrence: GB)
  Receive Date: 20140717
  Receipt Date: 20140717
  Transmission Date: 20150326
  Serious: Yes (Death, Other)
  Sender: FDA-Public Use
  Company Number: GB-ROCHE-1030071

PATIENT

DRUGS (6)
  1. RILOTUMUMAB [Suspect]
     Active Substance: RILOTUMUMAB
     Indication: GASTRIC CANCER
     Route: 042
  2. CAPECITABINE [Suspect]
     Active Substance: CAPECITABINE
     Indication: GASTRIC CANCER
     Dosage: ON DAYS 1-21 EVERY 3 WEEKS
     Route: 048
  3. EPIRUBICIN [Suspect]
     Active Substance: EPIRUBICIN
     Indication: GASTRIC CANCER
     Dosage: ON DAY 1 EVERY 3 WEEKS
     Route: 042
  4. CISPLATIN. [Suspect]
     Active Substance: CISPLATIN
     Indication: GASTRIC CANCER
     Dosage: ON DAY 1 EVERY 3 WEEKS
     Route: 042
  5. RILOTUMUMAB [Suspect]
     Active Substance: RILOTUMUMAB
     Route: 042
  6. RILOTUMUMAB [Suspect]
     Active Substance: RILOTUMUMAB
     Route: 042

REACTIONS (31)
  - Haemorrhage intracranial [Fatal]
  - Constipation [Unknown]
  - Thrombocytopenia [Unknown]
  - Fall [Fatal]
  - Palmar-plantar erythrodysaesthesia syndrome [Unknown]
  - Diarrhoea [Unknown]
  - Asthenia [Unknown]
  - Syncope [Fatal]
  - Deep vein thrombosis [Unknown]
  - Pyrexia [Unknown]
  - Mucosal inflammation [Unknown]
  - Pulmonary embolism [Unknown]
  - Vomiting [Unknown]
  - Dyspnoea [Unknown]
  - Peritonitis [Fatal]
  - Oedema peripheral [Unknown]
  - Fatigue [Unknown]
  - Decreased appetite [Unknown]
  - Leukopenia [Unknown]
  - Haematemesis [Fatal]
  - Neoplasm malignant [Fatal]
  - Nausea [Unknown]
  - Abdominal pain [Unknown]
  - Septic shock [Fatal]
  - Cardiac arrest [Fatal]
  - Anaemia [Unknown]
  - Hypomagnesaemia [Unknown]
  - Neoplasm progression [Fatal]
  - Neutropenia [Unknown]
  - Hypokalaemia [Unknown]
  - Dizziness [Unknown]
